FAERS Safety Report 12850373 (Version 1)
Quarter: 2016Q4

REPORT INFORMATION
  Report Type: Spontaneous
  Country: US (occurrence: US)
  Receive Date: 20161014
  Receipt Date: 20161014
  Transmission Date: 20170207
  Serious: Yes (Other)
  Sender: FDA-Public Use
  Company Number: US-SAOL THERAPEUTICS-2016SAO00884

PATIENT
  Sex: Female

DRUGS (12)
  1. DILAUDID [Concomitant]
     Active Substance: HYDROMORPHONE HYDROCHLORIDE
  2. COMPOUNDED BACLOFEN [Suspect]
     Active Substance: BACLOFEN
     Indication: PAIN
     Dosage: 25.003 ?G, \DAY
     Route: 037
     Dates: end: 20150707
  3. MORPHINE [Suspect]
     Active Substance: MORPHINE
     Dosage: 0.5 MG, \DAY
     Route: 037
     Dates: end: 20150728
  4. CIPRO [Concomitant]
     Active Substance: CIPROFLOXACIN HYDROCHLORIDE
  5. LEVOTHYROXINE. [Concomitant]
     Active Substance: LEVOTHYROXINE
  6. LYRICA [Concomitant]
     Active Substance: PREGABALIN
  7. KLONOPIN [Concomitant]
     Active Substance: CLONAZEPAM
  8. AUGMENTIN [Concomitant]
     Active Substance: AMOXICILLIN\CLAVULANATE POTASSIUM
  9. ZOLPIDEM [Concomitant]
     Active Substance: ZOLPIDEM\ZOLPIDEM TARTRATE
  10. BUPIVICAINE [Suspect]
     Active Substance: BUPIVACAINE
     Dosage: 4.507 MG, \DAY
     Route: 037
  11. SKELAXIN [Concomitant]
     Active Substance: METAXALONE
  12. LEVAQUIN [Concomitant]
     Active Substance: LEVOFLOXACIN

REACTIONS (5)
  - Spinal operation [Unknown]
  - Off label use [Unknown]
  - Back pain [Unknown]
  - Radiculopathy [Unknown]
  - Nerve injury [Unknown]

NARRATIVE: CASE EVENT DATE: 2010
